FAERS Safety Report 8808547 (Version 1)
Quarter: 2012Q4

REPORT INFORMATION
  Report Type: Report from Study
  Country: PL (occurrence: PL)
  Receive Date: 20120926
  Receipt Date: 20120926
  Transmission Date: 20130627
  Serious: Yes (Hospitalization)
  Sender: FDA-Public Use
  Company Number: PHHY2012PL061962

PATIENT
  Age: 61 Year
  Sex: Female
  Weight: 50 kg

DRUGS (16)
  1. AMN107 [Suspect]
     Indication: CHRONIC MYELOID LEUKAEMIA
     Dosage: 800 mg, per day
     Route: 048
     Dates: start: 20110629
  2. INHIBACE [Concomitant]
     Dosage: 2.5 mg, daily
  3. CONCOR COR [Concomitant]
     Dosage: 2.5 mg, daily
  4. TERTENSIF - SLOW RELEASE [Concomitant]
     Indication: HYPERTENSION
     Dosage: 1.5 mg, UNK
  5. CARDURA [Concomitant]
     Indication: HYPERTENSION
     Dosage: 4 mg, UNK
  6. NORVASC [Concomitant]
     Indication: HYPERTENSION
     Dosage: 10 mg, UNK
  7. TRITACE [Concomitant]
     Indication: HYPERTENSION
     Dosage: 5 mg, UNK
  8. CAVINTON [Concomitant]
  9. NACL [Concomitant]
  10. METOCARD [Concomitant]
  11. ACETYLSALICYLIC ACID [Concomitant]
  12. KALIPOZ [Concomitant]
  13. ROSUVASTATIN [Concomitant]
  14. ELECTROLYTE SOLUTIONS [Concomitant]
  15. PYRALGINUM [Concomitant]
  16. CAVINTON [Concomitant]

REACTIONS (9)
  - Cerebrovascular accident [Recovering/Resolving]
  - Hemiparesis [Recovering/Resolving]
  - Facial asymmetry [Recovering/Resolving]
  - Eyelid disorder [Recovering/Resolving]
  - Hypertonia [Recovering/Resolving]
  - Pain [Recovering/Resolving]
  - Memory impairment [Recovering/Resolving]
  - Disorientation [Recovering/Resolving]
  - Ischaemic stroke [Recovering/Resolving]
